FAERS Safety Report 21238501 (Version 10)
Quarter: 2025Q2

REPORT INFORMATION
  Report Type: Report from Study
  Country: CA (occurrence: CA)
  Receive Date: 20220822
  Receipt Date: 20250508
  Transmission Date: 20250717
  Serious: Yes (Hospitalization, Other)
  Sender: GLAXOSMITHKLINE
  Company Number: CA-GLAXOSMITHKLINE-CA2022119472

PATIENT

DRUGS (2)
  1. MEPOLIZUMAB [Suspect]
     Active Substance: MEPOLIZUMAB
     Indication: Asthma
     Dosage: 100 MG, Q4W
     Route: 058
     Dates: start: 20200616
  2. TEZSPIRE [Concomitant]
     Active Substance: TEZEPELUMAB-EKKO
     Indication: Product used for unknown indication
     Dates: start: 20230322

REACTIONS (9)
  - Oesophageal obstruction [Not Recovered/Not Resolved]
  - Hospitalisation [Unknown]
  - Somnolence [Unknown]
  - Emotional distress [Unknown]
  - Fatigue [Unknown]
  - Injection site pain [Unknown]
  - COVID-19 [Recovered/Resolved]
  - Therapeutic response shortened [Unknown]
  - Inappropriate schedule of product administration [Unknown]

NARRATIVE: CASE EVENT DATE: 20220629
